FAERS Safety Report 20138393 (Version 1)
Quarter: 2021Q4

REPORT INFORMATION
  Report Type: Spontaneous
  Country: GB (occurrence: GB)
  Receive Date: 20211202
  Receipt Date: 20211202
  Transmission Date: 20220304
  Serious: Yes (Congenital Anomaly)
  Sender: FDA-Public Use
  Company Number: GB-Bristol Laboratories Ltd-BLL200908-002782

PATIENT
  Age: 3 Month
  Sex: Female
  Weight: 3.328 kg

DRUGS (1)
  1. CIPROFLOXACIN [Suspect]
     Active Substance: CIPROFLOXACIN
     Indication: Product used for unknown indication
     Dosage: 250 MG, QD
     Route: 064
     Dates: start: 20070215, end: 20070219

REACTIONS (2)
  - Abnormal palmar/plantar creases [Unknown]
  - Foetal exposure during pregnancy [Not Recovered/Not Resolved]
